FAERS Safety Report 5454439-6 (Version None)
Quarter: 2007Q3

REPORT INFORMATION
  Report Type: 
  Country: None (occurrence: None)
  Receive Date: 20070917
  Receipt Date: 20060914
  Transmission Date: 20080115
  Serious: No
  Sender: FDA-Public Use
  Company Number: US-ASTRAZENECA-2006UW18039

PATIENT
  Age: 58 Year
  Sex: Female
  Weight: 79.4 kg

DRUGS (7)
  1. SEROQUEL [Suspect]
     Indication: ILL-DEFINED DISORDER
     Route: 048
  2. BUSPAR [Concomitant]
  3. IMIPRAMINE [Concomitant]
  4. ESTROTEST [Concomitant]
  5. ATENOLOL [Concomitant]
     Route: 048
  6. LORAZEPAM [Concomitant]
  7. CRESTOR [Concomitant]
     Route: 048

REACTIONS (4)
  - ABNORMAL SENSATION IN EYE [None]
  - EXOPHTHALMOS [None]
  - EYE SWELLING [None]
  - OCULAR HYPERAEMIA [None]
